FAERS Safety Report 7726596-X (Version None)
Quarter: 2011Q3

REPORT INFORMATION
  Report Type: 
  Country: None (occurrence: None)
  Receive Date: 20110902
  Receipt Date: 20110829
  Transmission Date: 20111222
  Serious: Yes (Death, Other)
  Sender: FDA-Public Use
  Company Number: PHHY2011CA01321

PATIENT
  Sex: Female

DRUGS (14)
  1. SPIRIVA [Concomitant]
     Dosage: 180 UG, QD
  2. SENOKOT [Concomitant]
  3. DOCUSATE [Concomitant]
     Dosage: 100 MG, BID
  4. VITAMIN B-12 [Concomitant]
  5. FUROSEMIDE [Concomitant]
     Dosage: 40 MG, BID
  6. DILTIAZEM [Concomitant]
     Dosage: 180 MG, QD
  7. ZOLEDRONOC ACID [Suspect]
     Indication: OSTEOPOROSIS
     Dosage: UNK UKN, UNK
     Route: 042
     Dates: start: 20100118
  8. ZOLEDRONOC ACID [Suspect]
     Dosage: UNK UKN, UNK
     Route: 042
     Dates: start: 20110124
  9. VENTOLIN HFA [Concomitant]
     Dosage: 100 MG, PRN
  10. COZAAR [Concomitant]
     Dosage: 50 MG, QD
  11. VITAMIN D [Concomitant]
  12. SYMBICORT [Concomitant]
     Dosage: 200 MG, BID
  13. CALCIUM CARBONATE [Concomitant]
     Dosage: 250 MG, QD
  14. ATORVASTATIN [Concomitant]
     Dosage: 20 MG, QD

REACTIONS (4)
  - FALL [None]
  - ACCIDENT [None]
  - DEATH [None]
  - LACERATION [None]
